FAERS Safety Report 6532424-0 (Version None)
Quarter: 2010Q1

REPORT INFORMATION
  Report Type: 
  Country: None (occurrence: None)
  Receive Date: 20100108
  Receipt Date: 20091231
  Transmission Date: 20100710
  Serious: Yes (Other)
  Sender: FDA-Public Use
  Company Number: US-ELI_LILLY_AND_COMPANY-US201001000120

PATIENT
  Sex: Male

DRUGS (5)
  1. HUMALOG MIX 75/25 [Suspect]
     Indication: DIABETES MELLITUS
     Dosage: 135 U, 2/D
  2. HUMALOG MIX 75/25 [Suspect]
     Dosage: 135 U, 2/D
     Dates: start: 20091208
  3. HUMALOG MIX 75/25 [Suspect]
     Dosage: 135 U, 2/D
  4. HUMALOG MIX 75/25 [Suspect]
     Dosage: 135 U, 2/D
  5. ORAL ANTIDIABETICS [Concomitant]

REACTIONS (8)
  - ARTHRITIS [None]
  - CARDIAC FAILURE CONGESTIVE [None]
  - CORONARY ARTERY BYPASS [None]
  - LOWER RESPIRATORY TRACT INFECTION [None]
  - PLEURAL EFFUSION [None]
  - STENT PLACEMENT [None]
  - VASCULAR GRAFT [None]
  - WRONG TECHNIQUE IN DRUG USAGE PROCESS [None]
